FAERS Safety Report 22879677 (Version 2)
Quarter: 2023Q4

REPORT INFORMATION
  Report Type: Spontaneous
  Country: GR (occurrence: GR)
  Receive Date: 20230829
  Receipt Date: 20231023
  Transmission Date: 20240110
  Serious: Yes (Other)
  Sender: FDA-Public Use
  Company Number: GR-MYLANLABS-2023M1078957

PATIENT
  Age: 55 Year
  Sex: Male

DRUGS (8)
  1. MIRTAZAPINE [Suspect]
     Active Substance: MIRTAZAPINE
     Indication: Parkinson^s disease
     Dosage: 30 MILLIGRAM, QD
     Route: 048
  2. MIRTAZAPINE [Suspect]
     Active Substance: MIRTAZAPINE
     Indication: Thermohyperaesthesia
     Dosage: 150 MG, QD (FIVE 30 MG TABLETS PER DAY)
     Route: 048
  3. MIRTAZAPINE [Suspect]
     Active Substance: MIRTAZAPINE
     Indication: Muscle spasms
     Dosage: 90 MILLIGRAM, QD
     Route: 048
  4. MIRTAZAPINE [Suspect]
     Active Substance: MIRTAZAPINE
     Indication: Musculoskeletal pain
  5. CARBIDOPA [Concomitant]
     Active Substance: CARBIDOPA
     Dosage: UNK
     Route: 065
  6. LEVODOPA [Concomitant]
     Active Substance: LEVODOPA
     Dosage: UNK
     Route: 065
  7. ENTACAPONE [Concomitant]
     Active Substance: ENTACAPONE
     Dosage: (5-6 TIMES PER DAY)
     Route: 065
  8. CARBIDOPA, LEVODOPA AND ENTACAPONE [Concomitant]
     Active Substance: CARBIDOPA\ENTACAPONE\LEVODOPA
     Indication: Parkinson^s disease
     Dosage: (5-6 TIMES PER DAY)
     Route: 065

REACTIONS (9)
  - Drug abuse [Unknown]
  - Micturition urgency [Not Recovered/Not Resolved]
  - Nightmare [Recovered/Resolved]
  - Drug effective for unapproved indication [Unknown]
  - Intentional product use issue [Unknown]
  - Overdose [Unknown]
  - Off label use [Unknown]
  - Intentional overdose [Unknown]
  - Product use in unapproved indication [Unknown]
